FAERS Safety Report 10263914 (Version 1)
Quarter: 2014Q2

REPORT INFORMATION
  Report Type: Spontaneous
  Country: US (occurrence: US)
  Receive Date: 20140627
  Receipt Date: 20140627
  Transmission Date: 20141212
  Serious: Yes (Other)
  Sender: FDA-Public Use
  Company Number: US-AMGEN-USASP2014047694

PATIENT
  Age: 69 Year
  Sex: Female

DRUGS (1)
  1. ENBREL [Suspect]
     Indication: PSORIASIS
     Dosage: UNKNOWN TWICE WEEKLY
     Route: 065
     Dates: start: 20131207

REACTIONS (2)
  - Urinary tract infection [Recovered/Resolved]
  - Drug effect incomplete [Not Recovered/Not Resolved]
